FAERS Safety Report 5246033-7 (Version None)
Quarter: 2007Q1

REPORT INFORMATION
  Report Type: 
  Country: None (occurrence: None)
  Receive Date: 20061201
  Receipt Date: 20060725
  Transmission Date: 20070707
  Serious: No
  Sender: FDA-Public Use
  Company Number: 2006PV018183

PATIENT
  Age: 69 Year
  Sex: Male
  Weight: 74.8435 kg

DRUGS (6)
  1. BYETTA [Suspect]
     Indication: DIABETES MELLITUS NON-INSULIN-DEPENDENT
     Dosage: 5 MCG;QOD;SC, 5MCG;BID;SC;5 MCG;BID;SC
     Route: 058
     Dates: start: 20060801, end: 20060801
  2. BYETTA [Suspect]
     Indication: DIABETES MELLITUS NON-INSULIN-DEPENDENT
     Dosage: 5 MCG;QOD;SC, 5MCG;BID;SC;5 MCG;BID;SC
     Route: 058
     Dates: start: 20060714
  3. BYETTA [Suspect]
     Indication: DIABETES MELLITUS NON-INSULIN-DEPENDENT
     Dosage: 5 MCG;QOD;SC, 5MCG;BID;SC;5 MCG;BID;SC
     Route: 058
     Dates: start: 20060801
  4. GLUCOPHAGE [Concomitant]
  5. HUMALOG [Concomitant]
  6. LANTUS [Concomitant]

REACTIONS (5)
  - BURNING SENSATION [None]
  - CONSTIPATION [None]
  - FAECES HARD [None]
  - GASTRIC DISORDER [None]
  - HEADACHE [None]
